FAERS Safety Report 6552803-5 (Version None)
Quarter: 2010Q1

REPORT INFORMATION
  Report Type: 
  Country: None (occurrence: None)
  Receive Date: 20100126
  Receipt Date: 20100114
  Transmission Date: 20100710
  Serious: Yes (Hospitalization)
  Sender: FDA-Public Use
  Company Number: KR-GILEAD-E2B_00000549

PATIENT
  Age: 61 Year
  Sex: Female
  Weight: 65.6 kg

DRUGS (7)
  1. HEPSERA [Suspect]
     Indication: HEPATITIS B
     Dosage: 10MG PER DAY
     Route: 048
     Dates: start: 20060530
  2. LAMIVUDINE [Concomitant]
     Indication: ANTIVIRAL TREATMENT
     Dates: start: 20041008
  3. VITAMIN B COMPLEX CAP [Concomitant]
     Dates: start: 20041008
  4. ASCORBIC ACID [Concomitant]
     Indication: VITAMIN C
     Dates: start: 20041008
  5. PROPRANOLOL [Concomitant]
     Indication: VARICES OESOPHAGEAL
     Dates: start: 20041008
  6. FAMOTIDINE [Concomitant]
     Dates: start: 20060819, end: 20060826
  7. SUCRALFATE [Concomitant]
     Dates: start: 20060721, end: 20060826

REACTIONS (1)
  - HAEMATEMESIS [None]
